FAERS Safety Report 6877224-7 (Version None)
Quarter: 2010Q3

REPORT INFORMATION
  Report Type: 
  Country: None (occurrence: None)
  Receive Date: 20100727
  Receipt Date: 20100224
  Transmission Date: 20110219
  Serious: No
  Sender: FDA-Public Use
  Company Number: US-ABBOTT-01P-163-0184182-00

PATIENT
  Sex: Male
  Weight: 65.83 kg

DRUGS (5)
  1. SYNTHROID [Suspect]
     Indication: BASEDOW'S DISEASE
     Dosage: ALTERNATES 150 MCG AND 175 MCG
     Route: 048
     Dates: start: 20000101
  2. CALTRATE WITH VITAMIN D (NON-KNOLL PRODUCT) [Suspect]
     Indication: IRRITABLE BOWEL SYNDROME
     Route: 048
     Dates: start: 20001201
  3. MULTI-VITAMIN (NON-KNOLL PRODUCT) [Suspect]
     Indication: SUPPLEMENTATION THERAPY
     Route: 048
  4. AMITRIPTYLINE HYDROCHLORIDE [Suspect]
     Indication: DEPRESSION
     Dates: start: 20090801
  5. LEVOXYL [Concomitant]
     Indication: BASEDOW'S DISEASE
     Dates: start: 20060401

REACTIONS (10)
  - BLOOD THYROID STIMULATING HORMONE ABNORMAL [None]
  - DEPRESSION [None]
  - DIARRHOEA [None]
  - DYSPEPSIA [None]
  - DYSPHONIA [None]
  - FATIGUE [None]
  - GASTRITIS [None]
  - IRRITABLE BOWEL SYNDROME [None]
  - LACTOSE INTOLERANCE [None]
  - WEIGHT LOSS POOR [None]
